FAERS Safety Report 7552219-9 (Version None)
Quarter: 2011Q2

REPORT INFORMATION
  Report Type: 
  Country: None (occurrence: None)
  Receive Date: 20110616
  Receipt Date: 20041130
  Transmission Date: 20111010
  Serious: Yes (Hospitalization)
  Sender: FDA-Public Use
  Company Number: PHFR2004GB03594

PATIENT
  Sex: Female

DRUGS (1)
  1. CLOZAPINE [Suspect]
     Indication: SCHIZOPHRENIA
     Route: 048
     Dates: start: 20030519

REACTIONS (5)
  - RENAL DISORDER [None]
  - LOWER RESPIRATORY TRACT INFECTION [None]
  - FLUID RETENTION [None]
  - MOBILITY DECREASED [None]
  - LIMB DISCOMFORT [None]
